FAERS Safety Report 24410254 (Version 2)
Quarter: 2025Q3

REPORT INFORMATION
  Report Type: Report from Study
  Country: CA (occurrence: CA)
  Receive Date: 20241008
  Receipt Date: 20250802
  Transmission Date: 20251021
  Serious: Yes (Hospitalization, Other)
  Sender: ALEXION PHARMACEUTICALS
  Company Number: CA-AstraZeneca-CH-00690785A

PATIENT
  Age: 74 Year
  Sex: Female

DRUGS (11)
  1. ULTOMIRIS [Suspect]
     Active Substance: RAVULIZUMAB-CWVZ
     Indication: Paroxysmal nocturnal haemoglobinuria
  2. ULTOMIRIS [Suspect]
     Active Substance: RAVULIZUMAB-CWVZ
  3. ULTOMIRIS [Suspect]
     Active Substance: RAVULIZUMAB-CWVZ
     Dosage: 3000 MILLIGRAM, Q8W
  4. WARFARIN [Suspect]
     Active Substance: WARFARIN
     Indication: Prophylaxis
     Dosage: 4 MILLIGRAM, QD
     Dates: start: 2006
  5. WARFARIN [Suspect]
     Active Substance: WARFARIN
     Indication: Coagulopathy
  6. FOLIC ACID [Concomitant]
     Active Substance: FOLIC ACID
     Indication: Supplementation therapy
     Dosage: 5 MILLIGRAM, QD
     Dates: start: 2006
  7. ASPIRIN [Concomitant]
     Active Substance: ASPIRIN
     Indication: Prophylaxis
     Dosage: 81 MILLIGRAM, QD
     Dates: start: 2006
  8. FERROUS GLUCONATE [Concomitant]
     Active Substance: FERROUS GLUCONATE
     Indication: Supplementation therapy
     Dosage: 300 MILLIGRAM, QD
     Dates: start: 2012
  9. CALCIUM [Concomitant]
     Active Substance: CALCIUM
     Indication: Product used for unknown indication
     Route: 065
  10. HEPARIN [Concomitant]
     Active Substance: HEPARIN SODIUM
     Indication: Product used for unknown indication
     Dosage: UNK, BID
     Dates: start: 20181007
  11. VITAMIN D [Concomitant]
     Active Substance: VITAMIN D NOS
     Indication: Product used for unknown indication

REACTIONS (15)
  - Diverticulum intestinal haemorrhagic [Unknown]
  - Haematoma muscle [Unknown]
  - Oedema peripheral [Unknown]
  - Dysuria [Unknown]
  - Loss of personal independence in daily activities [Unknown]
  - Blood lactate dehydrogenase increased [Unknown]
  - Haemoglobin decreased [Unknown]
  - Platelet count decreased [Unknown]
  - Haematocrit decreased [Unknown]
  - Red blood cell count decreased [Unknown]
  - Mean cell volume increased [Unknown]
  - Mean cell haemoglobin increased [Unknown]
  - Red cell distribution width increased [Unknown]
  - Reticulocyte count increased [Unknown]
  - Monocyte count decreased [Unknown]
